FAERS Safety Report 10460877 (Version 1)
Quarter: 2014Q3

REPORT INFORMATION
  Report Type: Spontaneous
  Country: US (occurrence: None)
  Receive Date: 20140917
  Receipt Date: 20140917
  Transmission Date: 20150326
  Serious: No
  Sender: FDA-Public Use
  Company Number: None

PATIENT
  Age: 80 Year
  Sex: Female
  Weight: 64.41 kg

DRUGS (2)
  1. MYRBETRIQ [Suspect]
     Active Substance: MIRABEGRON
     Indication: HYPERTONIC BLADDER
     Dosage: 1PILL, ONCE DAILY, TAKEN BY MOUTH
     Route: 048
     Dates: start: 20140815, end: 20140905
  2. MYRBETRIQ [Suspect]
     Active Substance: MIRABEGRON
     Dosage: 1PILL, ONCE DAILY, TAKEN BY MOUTH
     Route: 048
     Dates: start: 20140815, end: 20140905

REACTIONS (4)
  - Headache [None]
  - Dizziness [None]
  - Urine output decreased [None]
  - Sinus congestion [None]

NARRATIVE: CASE EVENT DATE: 20140903
